FAERS Safety Report 6848796-3 (Version None)
Quarter: 2010Q3

REPORT INFORMATION
  Report Type: 
  Country: None (occurrence: None)
  Receive Date: 20100716
  Receipt Date: 20070909
  Transmission Date: 20110219
  Serious: No
  Sender: FDA-Public Use
  Company Number: US-PFIZER INC-2007075246

PATIENT
  Sex: Female
  Weight: 48.1 kg

DRUGS (6)
  1. CHANTIX [Suspect]
     Indication: SMOKING CESSATION THERAPY
     Route: 048
     Dates: start: 20070906
  2. PRILOSEC [Concomitant]
  3. TYLENOL [Concomitant]
     Indication: PAIN
  4. DICLOFENAC [Concomitant]
  5. HYDROCODONE [Concomitant]
  6. FLONASE [Concomitant]

REACTIONS (1)
  - ABDOMINAL DISCOMFORT [None]
